FAERS Safety Report 7931689 (Version 30)
Quarter: 2020Q1

REPORT INFORMATION
  Report Type: Report from Study
  Country: CA (occurrence: CA)
  Receive Date: 20110505
  Receipt Date: 20200225
  Transmission Date: 20200409
  Serious: Yes (Life-Threatening, Other)
  Sender: FDA-Public Use
  Company Number: PHHY2010CA84378

PATIENT
  Age: 54 Year
  Sex: Female

DRUGS (8)
  1. FLEXERIL [Concomitant]
     Active Substance: CYCLOBENZAPRINE HYDROCHLORIDE
     Indication: PRODUCT USED FOR UNKNOWN INDICATION
     Route: 065
  2. SANDOSTATIN LAR DEPOT [Suspect]
     Active Substance: OCTREOTIDE ACETATE
     Dosage: 20 MG, EVERY THREE WEEKS
     Route: 030
     Dates: start: 2005
  3. LOSEC [Concomitant]
     Active Substance: OMEPRAZOLE
     Indication: PRODUCT USED FOR UNKNOWN INDICATION
     Route: 065
  4. SANDOSTATIN LAR DEPOT [Suspect]
     Active Substance: OCTREOTIDE ACETATE
     Dosage: 30 MG, EVERY THREE WEEKS
     Route: 030
     Dates: start: 20100921
  5. SYNTHROID [Concomitant]
     Active Substance: LEVOTHYROXINE SODIUM
     Indication: PRODUCT USED FOR UNKNOWN INDICATION
     Route: 065
  6. SANDOSTATIN LAR DEPOT [Suspect]
     Active Substance: OCTREOTIDE ACETATE
     Indication: DUMPING SYNDROME
     Dosage: 30 MG, EVERY THREE WEEKS
     Route: 030
     Dates: start: 20041120
  7. PROPANOLOL [Suspect]
     Active Substance: PROPRANOLOL HYDROCHLORIDE
     Indication: PRODUCT USED FOR UNKNOWN INDICATION
     Route: 065
  8. FIORINAL-C [Concomitant]
     Active Substance: ASPIRIN\BUTALBITAL\CAFFEINE\CODEINE PHOSPHATE
     Indication: PRODUCT USED FOR UNKNOWN INDICATION
     Route: 065

REACTIONS (19)
  - Inappropriate schedule of product administration [Unknown]
  - Arthritis [Recovering/Resolving]
  - Cystitis [Unknown]
  - Musculoskeletal stiffness [Recovering/Resolving]
  - Burning sensation [Unknown]
  - Blood pressure increased [Unknown]
  - Urinary tract infection [Unknown]
  - Stress [Unknown]
  - Haemorrhoids [Unknown]
  - Tenderness [Unknown]
  - Product use in unapproved indication [Unknown]
  - Hypoglycaemia [Unknown]
  - Gait inability [Recovering/Resolving]
  - Skin atrophy [Unknown]
  - Haemorrhage [Unknown]
  - Asthenia [Unknown]
  - Joint swelling [Recovered/Resolved]
  - Body temperature decreased [Unknown]
  - Malaise [Unknown]

NARRATIVE: CASE EVENT DATE: 20041120
